FAERS Safety Report 16289208 (Version 1)
Quarter: 2019Q2

REPORT INFORMATION
  Report Type: Spontaneous
  Country: US (occurrence: US)
  Receive Date: 20190404
  Receipt Date: 20190404
  Transmission Date: 20190711
  Serious: No
  Sender: FDA-Public Use
  Company Number: None

PATIENT

DRUGS (1)
  1. ATORVASTATIN CALCIUM. [Suspect]
     Active Substance: ATORVASTATIN CALCIUM

REACTIONS (5)
  - Overdose [None]
  - Rhabdomyolysis [None]
  - Wrong product administered [None]
  - Product name confusion [None]
  - Self-medication [None]
